FAERS Safety Report 23259569 (Version 1)
Quarter: 2023Q4

REPORT INFORMATION
  Report Type: Spontaneous
  Country: US (occurrence: None)
  Receive Date: 20231204
  Receipt Date: 20231204
  Transmission Date: 20240109
  Serious: Yes (Death)
  Sender: FDA-Public Use
  Company Number: None

PATIENT
  Age: 89 Year
  Sex: Female

DRUGS (2)
  1. LENALIDOMIDE [Suspect]
     Active Substance: LENALIDOMIDE
     Indication: Myelodysplastic syndrome
     Dosage: 2.5MG QD ORAL
     Route: 048
     Dates: start: 20230710, end: 20231101
  2. LENALIDOMIDE [Suspect]
     Active Substance: LENALIDOMIDE
     Indication: 5q minus syndrome

REACTIONS (12)
  - Mental status changes [None]
  - Confusional state [None]
  - Dyspnoea [None]
  - Sepsis [None]
  - Urosepsis [None]
  - Urinary tract infection [None]
  - Atrial fibrillation [None]
  - Cerebrovascular accident [None]
  - Transient ischaemic attack [None]
  - Acute coronary syndrome [None]
  - Rhonchi [None]
  - Effusion [None]

NARRATIVE: CASE EVENT DATE: 20231125
